FAERS Safety Report 21070106 (Version 1)
Quarter: 2022Q3

REPORT INFORMATION
  Report Type: Report from Study
  Country: EG (occurrence: EG)
  Receive Date: 20220712
  Receipt Date: 20220712
  Transmission Date: 20221026
  Serious: Yes (Hospitalization, Other)
  Sender: FDA-Public Use
  Company Number: EG-NOVARTISPH-NVSC2022EG154400

PATIENT
  Age: 11 Year
  Sex: Male

DRUGS (10)
  1. DICLOFENAC POTASSIUM [Suspect]
     Active Substance: DICLOFENAC POTASSIUM
     Indication: Abdominal pain
     Dosage: 1 DOSAGE FORM
     Route: 065
     Dates: start: 202012, end: 202012
  2. SINGULAIR [Concomitant]
     Active Substance: MONTELUKAST SODIUM
     Indication: Asthma
     Dosage: 1 DOSAGE FORM, QD
     Route: 065
     Dates: start: 201801
  3. RHINOCORT [Concomitant]
     Active Substance: BUDESONIDE
     Indication: Asthma
     Dosage: 1 DOSAGE FORM, BID
     Route: 065
     Dates: start: 2018
  4. FOSTER [Concomitant]
     Active Substance: BECLOMETHASONE\FORMOTEROL
     Indication: Asthma
     Dosage: 1 DOSAGE FORM, BID
     Route: 065
     Dates: start: 2018
  5. EBASTINE [Concomitant]
     Active Substance: EBASTINE
     Indication: Rhinitis allergic
     Dosage: UNK UNK, QD, AT NIGHT (OCCASIONAL)
     Route: 065
     Dates: start: 2018
  6. MONTELUKAST SODIUM [Concomitant]
     Active Substance: MONTELUKAST SODIUM
     Indication: Asthma
     Dosage: UNK
     Route: 065
     Dates: start: 2018, end: 2021
  7. SEDOKAST [Concomitant]
     Indication: Asthma
     Dosage: UNK, QD (AT NIGHT)
     Route: 065
     Dates: start: 2018, end: 2021
  8. MAXILASE [Concomitant]
     Active Substance: PANCRELIPASE
     Indication: Pneumonia
     Dosage: UNK, QD
     Route: 065
     Dates: start: 20220525
  9. FARCOLIN [Concomitant]
     Indication: Wheezing
     Dosage: UNK
     Route: 065
  10. PRIMPERAN [Concomitant]
     Active Substance: METOCLOPRAMIDE HYDROCHLORIDE
     Indication: Product used for unknown indication
     Dosage: UNK
     Route: 065

REACTIONS (2)
  - Asphyxia [Recovered/Resolved]
  - Cyanosis [Recovered/Resolved]

NARRATIVE: CASE EVENT DATE: 20201201
